FAERS Safety Report 16076756 (Version 3)
Quarter: 2019Q2

REPORT INFORMATION
  Report Type: Spontaneous
  Country: JP (occurrence: JP)
  Receive Date: 20190315
  Receipt Date: 20190613
  Transmission Date: 20190711
  Serious: Yes (Hospitalization, Other)
  Sender: FDA-Public Use
  Company Number: JP-BRISTOL-MYERS SQUIBB COMPANY-BMS-2019-024225

PATIENT
  Age: 58 Year
  Sex: Male
  Weight: 57 kg

DRUGS (2)
  1. KENACORT-A [Suspect]
     Active Substance: TRIAMCINOLONE
     Indication: PROPHYLAXIS
     Route: 065
  2. KENACORT-A [Suspect]
     Active Substance: TRIAMCINOLONE
     Indication: PRODUCT USED FOR UNKNOWN INDICATION
     Dosage: UNK, 40 MG OR LESS ONCE ONLY ON SURGERY DAY
     Route: 050
     Dates: start: 20170726

REACTIONS (1)
  - Chondritis [Recovered/Resolved]

NARRATIVE: CASE EVENT DATE: 201711
